FAERS Safety Report 19768291 (Version 1)
Quarter: 2021Q3

REPORT INFORMATION
  Report Type: Spontaneous
  Country: US (occurrence: US)
  Receive Date: 20210831
  Receipt Date: 20210831
  Transmission Date: 20211014
  Serious: Yes (Life-Threatening, Hospitalization, Other)
  Sender: FDA-Public Use
  Company Number: US-AMGEN-USASP2021131751

PATIENT
  Sex: Female

DRUGS (3)
  1. FILGRASTIM [Suspect]
     Active Substance: FILGRASTIM
     Indication: NEUTROPENIA
     Dosage: UNK
     Route: 065
  2. ADAVOSERTIB. [Concomitant]
     Active Substance: ADAVOSERTIB
     Indication: TRIPLE NEGATIVE BREAST CANCER
     Dosage: 200 MILLIGRAM, BID, FIVE DOSES OVER 2.5 DAYS FROM DAYS 1?3 IN COMBINATION WITH CISPLATIN
     Route: 048
  3. CISPLATIN. [Concomitant]
     Active Substance: CISPLATIN
     Indication: TRIPLE NEGATIVE BREAST CANCER
     Dosage: 75 MILLIGRAM/SQ. METER, Q3WK
     Route: 042

REACTIONS (5)
  - Lactic acidosis [Unknown]
  - Duodenitis [Unknown]
  - Atrial fibrillation [Unknown]
  - Respiratory failure [Unknown]
  - Hypotension [Unknown]
